FAERS Safety Report 21572118 (Version 1)
Quarter: 2022Q4

REPORT INFORMATION
  Report Type: Spontaneous
  Country: US (occurrence: None)
  Receive Date: 20221108
  Receipt Date: 20221108
  Transmission Date: 20230112
  Serious: No
  Sender: FDA-Public Use
  Company Number: None

PATIENT
  Age: 78 Year
  Sex: Male
  Weight: 90.45 kg

DRUGS (29)
  1. LENALIDOMIDE [Suspect]
     Active Substance: LENALIDOMIDE
     Indication: Plasma cell myeloma
     Dosage: OTHER FREQUENCY : 14DON7D OFF;?
     Route: 048
     Dates: start: 202210
  2. AMLODIPINE [Concomitant]
  3. ASPIRIN [Concomitant]
  4. CALCIUM PLUS VITAMIN D [Concomitant]
  5. CLONODINE [Concomitant]
  6. VITAMIN B12 [Concomitant]
  7. DEXAMETHASONE [Concomitant]
  8. EYE DROPOS [Concomitant]
  9. FENOFIBRATE [Concomitant]
  10. FERROUS SULFATE [Concomitant]
  11. FINASTERIDE [Concomitant]
  12. FISH OIL [Concomitant]
  13. FOLIC ACID [Concomitant]
  14. FUROSEMIDE [Concomitant]
  15. GABAPENTIN [Concomitant]
  16. GLIPIZIDE [Concomitant]
  17. KETOTIFEN [Concomitant]
  18. LANTANOPROST-TIMOLOL [Concomitant]
  19. LOSARTAN [Concomitant]
  20. NORCO [Concomitant]
  21. PANTOPRAZOLE [Concomitant]
  22. SIMVASTATIN [Concomitant]
  23. STOOL SOFTENER [Concomitant]
  24. TAMSULOSIN [Concomitant]
  25. TESTOSTERONE [Concomitant]
  26. TYLENOL [Concomitant]
  27. VELCADE [Concomitant]
  28. VITAMIN D3 [Concomitant]
     Active Substance: CHOLECALCIFEROL
  29. ZOFRAN [Concomitant]

REACTIONS (2)
  - COVID-19 [None]
  - Therapy interrupted [None]
